FAERS Safety Report 8524300-9 (Version None)
Quarter: 2012Q2

REPORT INFORMATION
  Report Type: 
  Country: None (occurrence: None)
  Receive Date: 20120406
  Receipt Date: 20120221
  Transmission Date: 20120825
  Serious: Yes (Hospitalization)
  Sender: FDA-Public Use
  Company Number: US-CYPR-2011-000053

PATIENT
  Sex: Male
  Weight: 95 kg

DRUGS (11)
  1. NEURONTIN [Concomitant]
  2. METOPROLOL SUCCINATE [Concomitant]
  3. PROTONIX [Concomitant]
  4. DIOVAN [Concomitant]
  5. ROSUVASTATIN [Concomitant]
  6. CYPHER STENT [Concomitant]
  7. ASPIRIN [Suspect]
     Indication: CORONARY ARTERY DISEASE
     Dosage: 81 MG QD ORAL, 325 MG QD ORAL
     Route: 048
     Dates: start: 20110412
  8. ASPIRIN [Suspect]
     Indication: CORONARY ARTERY DISEASE
     Dosage: 81 MG QD ORAL, 325 MG QD ORAL
     Route: 048
     Dates: start: 20091218, end: 20110411
  9. CLARITIN [Concomitant]
  10. PREVACID [Concomitant]
  11. CLOPIDOGREL [Suspect]
     Indication: ANTIPLATELET THERAPY
     Dosage: 75 MG QD ORAL
     Route: 048
     Dates: start: 20101209

REACTIONS (1)
  - ATRIAL FIBRILLATION [None]
